FAERS Safety Report 17807170 (Version 1)
Quarter: 2020Q2

REPORT INFORMATION
  Report Type: Spontaneous
  Country: IN (occurrence: ES)
  Receive Date: 20200520
  Receipt Date: 20200520
  Transmission Date: 20200714
  Serious: Yes (Hospitalization, Other)
  Sender: FDA-Public Use
  Company Number: ES-ELI_LILLY_AND_COMPANY-ES202005005790

PATIENT
  Age: 76 Year
  Sex: Female

DRUGS (2)
  1. FLUOXETINE HYDROCHLORIDE. [Suspect]
     Active Substance: FLUOXETINE HYDROCHLORIDE
     Indication: PRODUCT USED FOR UNKNOWN INDICATION
     Route: 065
  2. CANDESARTAN. [Concomitant]
     Active Substance: CANDESARTAN

REACTIONS (1)
  - Inappropriate antidiuretic hormone secretion [Recovered/Resolved]
